FAERS Safety Report 17910946 (Version 6)
Quarter: 2022Q3

REPORT INFORMATION
  Report Type: Spontaneous
  Country: DE (occurrence: DE)
  Receive Date: 20200618
  Receipt Date: 20220809
  Transmission Date: 20221027
  Serious: Yes (Life-Threatening, Hospitalization, Other)
  Sender: FDA-Public Use
  Company Number: NVSC2020DE169310

PATIENT
  Age: 69 Year
  Sex: Male
  Weight: 77 kg

DRUGS (25)
  1. CARVEDILOL [Interacting]
     Active Substance: CARVEDILOL
     Indication: Cardiac disorder
     Dosage: 50 MG, QD (25 MILLIGRAM, Q12H)
     Route: 065
     Dates: start: 201808
  2. TORSEMIDE [Interacting]
     Active Substance: TORSEMIDE
     Indication: Renal disorder
     Dosage: 10 MG, QD IN MORNING, DAILY,1-0-0
     Route: 065
     Dates: start: 201808
  3. SIMVASTATIN [Interacting]
     Active Substance: SIMVASTATIN
     Indication: Blood cholesterol
     Dosage: 40 MG, QD (0-0-1)
     Route: 065
     Dates: start: 20110506
  4. SIMVASTATIN [Interacting]
     Active Substance: SIMVASTATIN
     Indication: Diabetes mellitus
     Dosage: 40 MG, QD (0-0-1)
     Route: 065
     Dates: start: 201808
  5. SIMVASTATIN [Interacting]
     Active Substance: SIMVASTATIN
     Indication: Coronary artery disease
     Dosage: 10 MG, QD
     Route: 065
     Dates: start: 201808
  6. SIMVASTATIN [Interacting]
     Active Substance: SIMVASTATIN
     Indication: Hypertension
     Dosage: 15 IU, QD
     Route: 065
     Dates: start: 201808
  7. SIMVASTATIN [Interacting]
     Active Substance: SIMVASTATIN
     Indication: Gout
     Dosage: 50 MG, QD (0-0-1)
     Route: 065
     Dates: start: 201808
  8. SIMVASTATIN [Interacting]
     Active Substance: SIMVASTATIN
     Dosage: 100 MG, QD (0-0-1, 15 INTERNATIONAL UNIT, DAILY)
     Route: 065
     Dates: start: 201808
  9. RAMIPRIL [Interacting]
     Active Substance: RAMIPRIL
     Indication: Hypertension
     Dosage: 10 MG, QD (5 MG, BID)
     Route: 065
     Dates: start: 201808
  10. SPIRONOLACTONE [Interacting]
     Active Substance: SPIRONOLACTONE
     Indication: Cardiac disorder
     Dosage: 50 MG, QD (DAILY)
     Route: 048
     Dates: start: 20110506
  11. SPIRONOLACTONE [Interacting]
     Active Substance: SPIRONOLACTONE
     Indication: Coronary artery disease
     Dosage: 50 MG, QD (1-0-0;50 MILLIGRAM, QD, IN MORNING)
     Route: 065
     Dates: start: 201808
  12. AMLODIPINE BESYLATE [Interacting]
     Active Substance: AMLODIPINE BESYLATE
     Indication: Hypertension
     Dosage: 10 MG, QD (1-0-1, 5 MILLIGRAM, BID)
     Route: 065
     Dates: start: 201808
  13. AMLODIPINE BESYLATE [Interacting]
     Active Substance: AMLODIPINE BESYLATE
     Dosage: 10 MG, QD (5 MILLIGRAM, Q12H)
     Route: 065
     Dates: start: 201808
  14. ALLOPURINOL [Interacting]
     Active Substance: ALLOPURINOL
     Indication: Gout
     Dosage: 100 MG, QD
     Route: 065
     Dates: start: 201808
  15. JANUMET [Interacting]
     Active Substance: METFORMIN HYDROCHLORIDE\SITAGLIPTIN PHOSPHATE
     Indication: Diabetes mellitus
     Dosage: 1 DF, QD
     Route: 065
     Dates: start: 201808
  16. JANUMET [Interacting]
     Active Substance: METFORMIN HYDROCHLORIDE\SITAGLIPTIN PHOSPHATE
     Dosage: 2 DF, QD (1 DOSAGE FORM, Q12H)
     Route: 065
     Dates: start: 201808
  17. AVASTIN [Interacting]
     Active Substance: BEVACIZUMAB
     Indication: Diabetic retinal oedema
     Dosage: UNK (EINSPRITZEN INS RECHTE AUGE UM 13.30 UHRINJECT IN THE RIGHT EYE AT 13.30)
     Route: 031
     Dates: start: 20200115
  18. ELIQUIS [Interacting]
     Active Substance: APIXABAN
     Indication: Atrial fibrillation
     Dosage: 10 MG, QD (5 MG, BID)
     Route: 065
     Dates: start: 201808
  19. ELIQUIS [Interacting]
     Active Substance: APIXABAN
     Indication: Cerebrovascular accident prophylaxis
     Dosage: 10 MG, QD (1-0-1, 5 MG, BID)
     Route: 065
     Dates: start: 201808
  20. BENFOTIAMINE [Interacting]
     Active Substance: BENFOTIAMINE
     Indication: Cerebrovascular accident prophylaxis
     Dosage: 300 MG, QD
     Route: 065
     Dates: start: 201808
  21. BENFOTIAMINE [Interacting]
     Active Substance: BENFOTIAMINE
     Indication: Cardiovascular disorder
  22. INSULIN GLARGINE [Interacting]
     Active Substance: INSULIN GLARGINE
     Indication: Diabetes mellitus
     Dosage: 15 IU, QD (15 IE IN THE EVENING)
     Route: 065
     Dates: start: 201808
  23. IVABRADINE [Interacting]
     Active Substance: IVABRADINE
     Indication: Cardiac disorder
     Dosage: 7.5 MG, QD (1-0-0)
     Route: 065
     Dates: start: 201808
  24. INSULIN GLARGINE [Interacting]
     Active Substance: INSULIN GLARGINE
     Indication: Diabetes mellitus
     Dosage: 15 IU, QD (DAILY)
     Route: 065
     Dates: start: 201808
  25. LEVETIRACETAM [Concomitant]
     Active Substance: LEVETIRACETAM
     Indication: Product used for unknown indication
     Dosage: 2 DF, QD (1-0-1,1 DOSAGE FORM, BID)
     Route: 065

REACTIONS (9)
  - Movement disorder [Recovered/Resolved]
  - Seizure [Recovered/Resolved]
  - Eye movement disorder [Recovered/Resolved]
  - Oculogyric crisis [Recovered/Resolved]
  - Muscle spasms [Recovered/Resolved]
  - Status epilepticus [Recovering/Resolving]
  - Drug interaction [Recovered/Resolved]
  - Off label use [Recovered/Resolved]
  - Product use issue [Recovered/Resolved]

NARRATIVE: CASE EVENT DATE: 20180801
